FAERS Safety Report 8472636-2 (Version None)
Quarter: 2012Q2

REPORT INFORMATION
  Report Type: 
  Country: None (occurrence: None)
  Receive Date: 20120627
  Receipt Date: 20120511
  Transmission Date: 20120825
  Serious: No
  Sender: FDA-Public Use
  Company Number: US-AMGEN-USASP2012030149

PATIENT
  Sex: Male

DRUGS (1)
  1. EPOGEN [Suspect]
     Indication: LEUKAEMIA
     Dosage: 40000 IU, QWK
     Dates: start: 20120510

REACTIONS (1)
  - OVERDOSE [None]
